FAERS Safety Report 7953920-5 (Version None)
Quarter: 2011Q4

REPORT INFORMATION
  Report Type: 
  Country: None (occurrence: None)
  Receive Date: 20111202
  Receipt Date: 20111129
  Transmission Date: 20120403
  Serious: Yes (Death, Hospitalization)
  Sender: FDA-Public Use
  Company Number: DE-BRISTOL-MYERS SQUIBB COMPANY-16120206

PATIENT
  Age: 83 Year
  Sex: Male

DRUGS (9)
  1. MOVIPREP [Concomitant]
     Indication: PROPHYLAXIS
     Route: 048
     Dates: start: 20110926
  2. HYDROMORPHONE HCL [Concomitant]
     Indication: MALIGNANT MELANOMA
     Route: 048
     Dates: start: 20110926
  3. NOVALGIN [Concomitant]
     Indication: MALIGNANT MELANOMA
     Route: 048
     Dates: start: 20110926
  4. PANTOPRAZOLE SODIUM [Concomitant]
     Indication: MALIGNANT MELANOMA
     Route: 048
     Dates: start: 20110926
  5. METOCLOPRAMIDE HYDROCHLORIDE [Concomitant]
     Indication: MALIGNANT MELANOMA
     Route: 048
     Dates: start: 20110926
  6. IPILIMUMAB [Suspect]
     Indication: MALIGNANT MELANOMA
     Dosage: 6JUL11-6SEP11 NO OF CYCLES:4
     Route: 042
     Dates: start: 20110706, end: 20110909
  7. NEURONTIN [Concomitant]
     Indication: MALIGNANT MELANOMA
     Route: 048
  8. METOPROLOL [Concomitant]
     Indication: HYPERTENSION
     Route: 048
  9. CITALOPRAM [Concomitant]
     Indication: MALIGNANT MELANOMA
     Route: 048
     Dates: start: 20110926

REACTIONS (2)
  - HYPOGLYCAEMIA [None]
  - NEOPLASM MALIGNANT [None]
